FAERS Safety Report 18791160 (Version 1)
Quarter: 2021Q1

REPORT INFORMATION
  Report Type: Other
  Country: US (occurrence: US)
  Receive Date: 20210126
  Receipt Date: 20210126
  Transmission Date: 20210419
  Serious: Yes (Death, Life-Threatening, Hospitalization)
  Sender: FDA-Public Use
  Company Number: US-C B FLEET CO INC-202101-US-000162

PATIENT
  Age: 76 Year
  Sex: Female

DRUGS (2)
  1. DIPHENHYDRAMINE HCL [Suspect]
     Active Substance: DIPHENHYDRAMINE HYDROCHLORIDE
     Indication: PRODUCT USED FOR UNKNOWN INDICATION
     Dosage: 2?6 500MG TAB DPH/APAP COMBO
     Route: 048
  2. ACETAMINOPHEN. [Suspect]
     Active Substance: ACETAMINOPHEN
     Indication: PRODUCT USED FOR UNKNOWN INDICATION
     Dosage: 2?6 500MG TAB DPH/APAP COMBO
     Route: 048

REACTIONS (7)
  - Hallucination, visual [None]
  - Urosepsis [None]
  - Transaminases increased [None]
  - Blood lactic acid increased [None]
  - Hepatic failure [None]
  - Encephalopathy [None]
  - Product used for unknown indication [None]
